FAERS Safety Report 18123103 (Version 2)
Quarter: 2020Q3

REPORT INFORMATION
  Report Type: Spontaneous
  Country: FI (occurrence: FI)
  Receive Date: 20200807
  Receipt Date: 20200925
  Transmission Date: 20201103
  Serious: Yes (Other)
  Sender: FDA-Public Use
  Company Number: FI-ACCORD-194195

PATIENT
  Age: 34 Year
  Sex: Male

DRUGS (21)
  1. OLANZAPINE. [Suspect]
     Active Substance: OLANZAPINE
     Indication: BEHAVIOUR DISORDER
     Dosage: 10 MILLIGRAM, QD
     Dates: start: 2017
  2. METOPROLOL. [Suspect]
     Active Substance: METOPROLOL
     Indication: BEHAVIOUR DISORDER
  3. OXCARBAZEPINE. [Suspect]
     Active Substance: OXCARBAZEPINE
     Indication: SEIZURE
     Dosage: 900 MILLIGRAM, QD
  4. MELATONIN [Suspect]
     Active Substance: MELATONIN
     Indication: BEHAVIOUR DISORDER
     Dosage: 3 MILLIGRAM, QD
     Dates: start: 2017
  5. VALPROIC ACID. [Suspect]
     Active Substance: VALPROIC ACID
     Indication: MIGRAINE PROPHYLAXIS
     Dosage: 1200 MILLIGRAM, QD
  6. LEVOMEPROMAZINE [Suspect]
     Active Substance: LEVOMEPROMAZINE
     Indication: BEHAVIOUR DISORDER
     Dosage: 100 MILLIGRAM, QD
     Dates: start: 2017
  7. MACROGOL 3350 [Suspect]
     Active Substance: POLYETHYLENE GLYCOL 3350
     Indication: BEHAVIOUR DISORDER
     Dosage: UNK, 3 BAGS / DAY
  8. ESCITALOPRAM [Suspect]
     Active Substance: ESCITALOPRAM OXALATE
     Indication: BEHAVIOUR DISORDER
     Dosage: 10 MILLIGRAM, QD
     Dates: start: 2017
  9. CITALOPRAM [Suspect]
     Active Substance: CITALOPRAM HYDROBROMIDE
     Indication: BEHAVIOUR DISORDER
     Dosage: UNK
  10. RISPERIDONE. [Suspect]
     Active Substance: RISPERIDONE
     Indication: BEHAVIOUR DISORDER
     Dosage: 3 MILLIGRAM
  11. CANDESARTAN. [Suspect]
     Active Substance: CANDESARTAN
     Indication: BEHAVIOUR DISORDER
     Dosage: 16 MILLIGRAM, QD
     Dates: start: 2017
  12. LORAZEPAM. [Suspect]
     Active Substance: LORAZEPAM
     Indication: BEHAVIOUR DISORDER
     Dosage: 3 MILLIGRAM, QD
     Dates: start: 2017
  13. TOPIRAMATE. [Suspect]
     Active Substance: TOPIRAMATE
     Indication: PROPHYLAXIS
     Dosage: UNK
     Dates: start: 2015
  14. AMITRIPTYLINE [Suspect]
     Active Substance: AMITRIPTYLINE
     Indication: BEHAVIOUR DISORDER
  15. MACROGOL 3350 [Suspect]
     Active Substance: POLYETHYLENE GLYCOL 3350
     Indication: BEHAVIOUR DISORDER
     Dosage: UNK, 3 BAGS / DAY
  16. PANTOPRAZOLE [Suspect]
     Active Substance: PANTOPRAZOLE
     Indication: BEHAVIOUR DISORDER
     Dosage: 20 MILLIGRAM, QD
     Dates: start: 2017
  17. QUETIAPINE. [Suspect]
     Active Substance: QUETIAPINE
     Indication: BEHAVIOUR DISORDER
  18. CARBAMAZEPINE. [Suspect]
     Active Substance: CARBAMAZEPINE
     Indication: BEHAVIOUR DISORDER
     Dosage: UNK
  19. RISPERIDONE. [Suspect]
     Active Substance: RISPERIDONE
     Indication: BEHAVIOUR DISORDER
     Dosage: 4 MILLIGRAM, QD
     Dates: start: 2017
  20. BISOPROLOL [Suspect]
     Active Substance: BISOPROLOL
     Indication: BEHAVIOUR DISORDER
  21. TOPIRAMATE. [Suspect]
     Active Substance: TOPIRAMATE
     Indication: BEHAVIOUR DISORDER
     Dosage: UNK
     Dates: start: 2015

REACTIONS (8)
  - Condition aggravated [Unknown]
  - Intentional product use issue [Unknown]
  - Intentional self-injury [Not Recovered/Not Resolved]
  - Multiple drug therapy [Not Recovered/Not Resolved]
  - Drug ineffective [Unknown]
  - Aggression [Not Recovered/Not Resolved]
  - Off label use [Unknown]
  - Behaviour disorder [Not Recovered/Not Resolved]

NARRATIVE: CASE EVENT DATE: 2015
